FAERS Safety Report 25805740 (Version 1)
Quarter: 2025Q3

REPORT INFORMATION
  Report Type: Report from Study
  Country: CA (occurrence: CA)
  Receive Date: 20250916
  Receipt Date: 20250916
  Transmission Date: 20251020
  Serious: Yes (Other)
  Sender: ABBVIE
  Company Number: CA-ABBVIE-6454572

PATIENT
  Age: 76 Year
  Sex: Male

DRUGS (1)
  1. SKYRIZI [Suspect]
     Active Substance: RISANKIZUMAB-RZAA
     Indication: Psoriasis
     Dosage: SKYRIZI INJ PFS/PEN)
     Route: 058
     Dates: start: 20220622

REACTIONS (2)
  - Ear operation [Unknown]
  - Tinnitus [Unknown]

NARRATIVE: CASE EVENT DATE: 20250101
